FAERS Safety Report 13005144 (Version 1)
Quarter: 2016Q4

REPORT INFORMATION
  Report Type: Spontaneous
  Country: US (occurrence: US)
  Receive Date: 20161207
  Receipt Date: 20161207
  Transmission Date: 20170207
  Serious: Yes (Hospitalization, Other)
  Sender: FDA-Public Use
  Company Number: US-ZYDUS-012844

PATIENT
  Age: 56 Year
  Sex: Male

DRUGS (5)
  1. AMIODARONE [Suspect]
     Active Substance: AMIODARONE
     Indication: VENTRICULAR TACHYCARDIA
     Route: 048
  2. ROPINIROLE/ROPINIROLE HYDROCHLORIDE [Concomitant]
     Indication: PRODUCT USED FOR UNKNOWN INDICATION
     Route: 065
  3. CLOPIDOGREL [Concomitant]
     Active Substance: CLOPIDOGREL BISULFATE
     Indication: PRODUCT USED FOR UNKNOWN INDICATION
     Route: 065
  4. ATORVASTATIN [Concomitant]
     Active Substance: ATORVASTATIN
     Indication: PRODUCT USED FOR UNKNOWN INDICATION
     Route: 065
  5. ACETYLSALICYLIC ACID [Concomitant]
     Active Substance: ASPIRIN
     Indication: PRODUCT USED FOR UNKNOWN INDICATION
     Route: 065

REACTIONS (14)
  - Pulmonary toxicity [Unknown]
  - Lung infiltration [Recovering/Resolving]
  - Subcutaneous emphysema [Unknown]
  - Peripheral venous disease [Unknown]
  - Leukocytosis [Unknown]
  - Crepitations [Unknown]
  - Dyspnoea at rest [Recovered/Resolved]
  - Pulmonary mass [Unknown]
  - Asthenia [Unknown]
  - Hypoxia [Unknown]
  - Pyrexia [Unknown]
  - Rhonchi [Unknown]
  - Pleural effusion [Recovering/Resolving]
  - Bronchiectasis [Unknown]
